FAERS Safety Report 17483657 (Version 2)
Quarter: 2020Q3

REPORT INFORMATION
  Report Type: Report from Study
  Country: JP (occurrence: JP)
  Receive Date: 20200302
  Receipt Date: 20200804
  Transmission Date: 20201102
  Serious: Yes (Death, Other)
  Sender: FDA-Public Use
  Company Number: JP-CELGENEUS-087-21880-11093150

PATIENT
  Age: 66 Year
  Sex: Female

DRUGS (13)
  1. LENADEX [Suspect]
     Active Substance: DEXAMETHASONE ACETATE
     Dosage: 40 MILLIGRAM
     Route: 048
     Dates: start: 20101121, end: 20101124
  2. LENADEX [Suspect]
     Active Substance: DEXAMETHASONE ACETATE
     Indication: PLASMA CELL MYELOMA
     Route: 048
     Dates: start: 20101102, end: 20101112
  3. LENADEX [Suspect]
     Active Substance: DEXAMETHASONE ACETATE
     Dosage: 40 MILLIGRAM
     Route: 048
     Dates: start: 20101129, end: 20101202
  4. OXYCONTIN [Concomitant]
     Active Substance: OXYCODONE HYDROCHLORIDE
     Indication: PRODUCT USED FOR UNKNOWN INDICATION
     Dosage: 10 MILLIGRAM
     Route: 048
     Dates: start: 20101119, end: 20101129
  5. PROTECADIN [Concomitant]
     Active Substance: LAFUTIDINE
     Indication: PROPHYLAXIS
     Dosage: 10 MILLIGRAM
     Route: 048
     Dates: start: 20101102, end: 20101129
  6. NEUTROGIN [Concomitant]
     Active Substance: LENOGRASTIM
     Indication: NEUTROPENIA
  7. LENADEX [Suspect]
     Active Substance: DEXAMETHASONE ACETATE
     Dosage: 40 MILLIGRAM
     Route: 048
     Dates: start: 20101113, end: 20101116
  8. REVLIMID [Suspect]
     Active Substance: LENALIDOMIDE
     Indication: PLASMA CELL MYELOMA
     Dosage: 10 MILLIGRAM
     Route: 048
     Dates: start: 20101102, end: 20101108
  9. REVLIMID [Suspect]
     Active Substance: LENALIDOMIDE
     Dosage: 10 MILLIGRAM
     Route: 048
     Dates: start: 20101116, end: 20101122
  10. ZYLORIC [Concomitant]
     Active Substance: ALLOPURINOL
     Indication: PROPHYLAXIS
     Dosage: 400 MILLIGRAM
     Route: 048
     Dates: start: 20101102, end: 20101129
  11. BAYASPIRIN [Concomitant]
     Active Substance: ASPIRIN
     Indication: PROPHYLAXIS
     Dosage: 100 MILLIGRAM
     Route: 048
     Dates: start: 20101102, end: 20101108
  12. NEUTROGIN [Concomitant]
     Active Substance: LENOGRASTIM
     Indication: PLASMA CELL MYELOMA
     Dosage: 100 MILLIGRAM
     Route: 058
     Dates: start: 20101112, end: 20101223
  13. NEUTROGIN [Concomitant]
     Active Substance: LENOGRASTIM
     Indication: WHITE BLOOD CELL COUNT DECREASED

REACTIONS (7)
  - Red blood cell count decreased [Not Recovered/Not Resolved]
  - Plasma cell myeloma [Fatal]
  - Platelet count decreased [Recovered/Resolved]
  - Platelet count decreased [Not Recovered/Not Resolved]
  - Anaemia [Not Recovered/Not Resolved]
  - Neutropenia [Not Recovered/Not Resolved]
  - White blood cell count decreased [Recovered/Resolved]

NARRATIVE: CASE EVENT DATE: 20101108
